FAERS Safety Report 5638066-3 (Version None)
Quarter: 2008Q1

REPORT INFORMATION
  Report Type: 
  Country: None (occurrence: None)
  Receive Date: 20080222
  Receipt Date: 20080222
  Transmission Date: 20080703
  Serious: Yes (Other)
  Sender: FDA-Public Use
  Company Number: None

PATIENT
  Age: 32 Year
  Sex: Male
  Weight: 82.5547 kg

DRUGS (1)
  1. CENTRUM CHEWABLES MULTIVITAMIN WYETH CONSUMER HEALTHCARE [Suspect]
     Indication: DRUG THERAPY
     Dosage: 1 TABLET DAILY PO
     Route: 048
     Dates: start: 20070105, end: 20080220

REACTIONS (6)
  - HEADACHE [None]
  - LOWER RESPIRATORY TRACT INFECTION [None]
  - MYCOTOXICOSIS [None]
  - NASOPHARYNGITIS [None]
  - PHARMACEUTICAL PRODUCT COMPLAINT [None]
  - PHARYNGOLARYNGEAL PAIN [None]
